FAERS Safety Report 8524332-0 (Version None)
Quarter: 2012Q3

REPORT INFORMATION
  Report Type: 
  Country: None (occurrence: None)
  Receive Date: 20120720
  Receipt Date: 20120711
  Transmission Date: 20120928
  Serious: No
  Sender: FDA-Public Use
  Company Number: US-B.I. PHARMACEUTICALS,INC./RIDGEFIELD-2011-BP-18243BP

PATIENT
  Sex: Female
  Weight: 90.72 kg

DRUGS (44)
  1. ATROVENT [Concomitant]
     Dosage: 17 MCG
     Route: 055
     Dates: start: 20110526
  2. METFORMIN HYDROCHLORIDE [Concomitant]
  3. STOOL SOFTENER [Concomitant]
  4. HYPER-SOL [Concomitant]
     Route: 055
     Dates: start: 20110526
  5. ATROVENT [Concomitant]
     Indication: BRONCHITIS
     Dosage: 17 MCG
     Route: 055
     Dates: start: 20101101
  6. FLUTICASONE PROPIONATE [Concomitant]
     Indication: BRONCHITIS
     Route: 055
     Dates: start: 20101101
  7. ATARAX [Concomitant]
  8. SENNA-MINT WAF [Concomitant]
  9. CEFTIN [Concomitant]
     Route: 055
     Dates: start: 20110526
  10. ASPIRIN [Concomitant]
     Indication: PAIN
     Dosage: 325 MG
     Route: 048
     Dates: start: 20110203
  11. GLUCOPHAGE [Concomitant]
     Indication: TYPE 2 DIABETES MELLITUS
     Dosage: 2000 MG
     Route: 048
     Dates: start: 20100311
  12. ALBUTEROL [Concomitant]
     Route: 055
     Dates: start: 20110505
  13. FLOVENT [Concomitant]
     Indication: BRONCHITIS
     Route: 055
     Dates: start: 20110630
  14. SOVAGA [Concomitant]
     Dosage: 1 G
  15. CEFUROXIME [Concomitant]
  16. CALCIUM+D [Concomitant]
     Route: 048
     Dates: start: 20100624
  17. IBUPROFEN [Concomitant]
  18. HYPER-SOL [Concomitant]
  19. MULTI-VITAMIN [Concomitant]
     Indication: VITAMIN SUPPLEMENTATION
     Route: 048
  20. MAGNESIUM SULFATE [Concomitant]
     Indication: MINERAL SUPPLEMENTATION
     Dosage: 250 MG
     Route: 048
  21. ACTOS [Concomitant]
     Dosage: 30 MG
  22. METOPROLOL SUCCINATE [Concomitant]
     Indication: BLOOD PRESSURE
     Dosage: 50 MG
     Route: 048
     Dates: start: 20110203
  23. SYNTHROID [Concomitant]
     Indication: SUPPLEMENTATION THERAPY
     Dosage: 112 MCG
     Route: 048
     Dates: start: 20110203
  24. PRAVACHOL [Concomitant]
     Indication: BLOOD CHOLESTEROL
     Dosage: 20 MG
     Route: 048
     Dates: start: 20110203
  25. LOVAZA [Concomitant]
     Dosage: 4 G
     Route: 048
     Dates: start: 20110630
  26. ASCORBIC ACID [Concomitant]
     Indication: VITAMIN SUPPLEMENTATION
     Dosage: 1000 MG
     Route: 048
     Dates: start: 20100624
  27. VENTOLIN [Concomitant]
     Dates: start: 20110203
  28. NASONEX [Concomitant]
  29. IRON [Concomitant]
     Dosage: 1300 MG
  30. FLEXAMIN [Concomitant]
     Dosage: 60 MG
  31. TRILIPIX [Concomitant]
     Dosage: 135 MG
     Route: 048
     Dates: start: 20110203
  32. ALBUTEROL [Concomitant]
     Indication: BRONCHITIS
     Route: 055
     Dates: start: 20101101
  33. CEFTIN [Concomitant]
  34. POTASSIUM CHLORIDE [Concomitant]
     Indication: MINERAL SUPPLEMENTATION
     Dosage: 99 MG
     Route: 048
  35. BENADRYL [Concomitant]
  36. CETIRIZINE HCL [Concomitant]
  37. MIRALAX [Concomitant]
  38. ALLEGRA [Concomitant]
     Dosage: 180 MG
  39. TRADJENTA [Suspect]
     Indication: TYPE 2 DIABETES MELLITUS
     Dosage: 5 MG
     Route: 048
     Dates: start: 20110630, end: 20110714
  40. OMEPRAZOLE [Concomitant]
     Indication: GASTROOESOPHAGEAL REFLUX DISEASE
     Dosage: 40 MG
     Route: 048
     Dates: start: 20110203
  41. LOVAZA [Concomitant]
     Dosage: 2 MG
     Route: 048
  42. FLOVENT [Concomitant]
     Route: 055
     Dates: start: 20110526
  43. VITAMIN D [Concomitant]
     Indication: VITAMIN SUPPLEMENTATION
     Dosage: 2000 MG
     Route: 048
  44. GABAPENTIN [Concomitant]
     Dosage: 600 MG
     Dates: start: 20110203

REACTIONS (5)
  - SKIN EXFOLIATION [None]
  - ECZEMA [None]
  - RASH PRURITIC [None]
  - BLISTER [None]
  - RASH GENERALISED [None]
